FAERS Safety Report 19612109 (Version 1)
Quarter: 2021Q3

REPORT INFORMATION
  Report Type: Report from Study
  Country: US (occurrence: US)
  Receive Date: 20210726
  Receipt Date: 20210726
  Transmission Date: 20211014
  Serious: Yes (Other)
  Sender: FDA-Public Use
  Company Number: US-SEATTLE GENETICS-2021SGN03189

PATIENT
  Sex: Female

DRUGS (2)
  1. XELODA [Suspect]
     Active Substance: CAPECITABINE
     Indication: PRODUCT USED FOR UNKNOWN INDICATION
     Route: 065
  2. TUCATINIB [Suspect]
     Active Substance: TUCATINIB
     Indication: BREAST CANCER FEMALE
     Route: 065

REACTIONS (7)
  - Adverse reaction [Unknown]
  - Radiotherapy [Unknown]
  - Neuropathy peripheral [Unknown]
  - Headache [Unknown]
  - Platelet count abnormal [Unknown]
  - Brain neoplasm [Unknown]
  - Fatigue [Unknown]
